FAERS Safety Report 5432234-1 (Version None)
Quarter: 2007Q3

REPORT INFORMATION
  Report Type: 
  Country: None (occurrence: None)
  Receive Date: 20070731
  Receipt Date: 20070517
  Transmission Date: 20080115
  Serious: No
  Sender: FDA-Public Use
  Company Number: US200705004826

PATIENT
  Sex: Female

DRUGS (4)
  1. BYETTA [Suspect]
     Dosage: SUBCUTANEOUS
     Route: 058
     Dates: start: 20070516, end: 20070517
  2. EXENATIDE PEN, DISPOSABLE DEVICE (EXENATIDE PEN) PEN DISPOSABLE [Concomitant]
  3. AVAPRO [Concomitant]
  4. GLUCOPHAGE [Concomitant]

REACTIONS (1)
  - HYPOAESTHESIA [None]
